FAERS Safety Report 19538337 (Version 1)
Quarter: 2021Q3

REPORT INFORMATION
  Report Type: Spontaneous
  Country: US (occurrence: US)
  Receive Date: 20210714
  Receipt Date: 20210714
  Transmission Date: 20211014
  Serious: Yes (Death, Other)
  Sender: FDA-Public Use
  Company Number: US-BRISTOL-MYERS SQUIBB COMPANY-BMS-2021-066978

PATIENT
  Age: 70 Year
  Sex: Male

DRUGS (1)
  1. ELIQUIS [Suspect]
     Active Substance: APIXABAN
     Indication: ATRIOVENTRICULAR BLOCK
     Dosage: 5 MILLIGRAM, BID
     Route: 048
     Dates: start: 202104

REACTIONS (3)
  - Intentional product use issue [Unknown]
  - Oesophageal carcinoma [Fatal]
  - Haemorrhage [Unknown]

NARRATIVE: CASE EVENT DATE: 20210706
